FAERS Safety Report 9207041 (Version 1)
Quarter: 2013Q2

REPORT INFORMATION
  Report Type: Spontaneous
  Country: HR (occurrence: HR)
  Receive Date: 20130403
  Receipt Date: 20130403
  Transmission Date: 20140414
  Serious: Yes (Hospitalization)
  Sender: FDA-Public Use
  Company Number: HR-JNJFOC-20130318693

PATIENT
  Age: 84 Year
  Sex: Female
  Weight: 70 kg

DRUGS (11)
  1. ZALDIAR [Suspect]
     Indication: ARTHRALGIA
     Route: 048
     Dates: start: 2011, end: 201302
  2. ZALDIAR [Suspect]
     Indication: ARTHRALGIA
     Route: 048
     Dates: start: 201301, end: 20130211
  3. ZALDIAR [Suspect]
     Indication: ARTHRALGIA
     Route: 048
     Dates: start: 2011, end: 201302
  4. ZALDIAR [Suspect]
     Indication: ARTHRALGIA
     Route: 048
     Dates: start: 201301, end: 20130211
  5. KETONAL [Suspect]
     Indication: ARTHRALGIA
     Route: 048
     Dates: start: 20130211
  6. KETONAL [Suspect]
     Indication: ARTHRALGIA
     Route: 048
     Dates: start: 2011, end: 201302
  7. KETONAL [Suspect]
     Indication: ARTHRALGIA
     Route: 048
     Dates: start: 20130211
  8. KETONAL [Suspect]
     Indication: ARTHRALGIA
     Route: 048
     Dates: start: 2011, end: 201302
  9. MARTEFARIN [Interacting]
     Indication: ATRIAL FIBRILLATION
     Route: 048
     Dates: start: 20121011, end: 20130211
  10. AMLOPIN [Concomitant]
     Indication: HYPERTENSION
     Route: 048
     Dates: start: 2005
  11. IRUZID [Concomitant]
     Indication: HYPERTENSION
     Route: 048
     Dates: start: 2003

REACTIONS (7)
  - Gastric ulcer [Recovered/Resolved]
  - International normalised ratio increased [Recovered/Resolved]
  - Melaena [Recovered/Resolved]
  - Drug interaction [Recovered/Resolved]
  - Hyperhidrosis [Recovered/Resolved]
  - Asthenia [Recovered/Resolved]
  - Drug effect decreased [Unknown]
